FAERS Safety Report 4463257-7 (Version None)
Quarter: 2004Q3

REPORT INFORMATION
  Report Type: 
  Country: None (occurrence: None)
  Receive Date: 20040930
  Receipt Date: 20040921
  Transmission Date: 20050211
  Serious: Yes (Other)
  Sender: FDA-Public Use
  Company Number: 11941143

PATIENT
  Age: 35 Year
  Sex: Male

DRUGS (9)
  1. LAMIVUDINE [Suspect]
     Indication: HIV INFECTION
     Dosage: 150MG TWICE PER DAY
     Route: 048
     Dates: start: 20010402
  2. EFAVIRENZ [Suspect]
     Indication: HIV INFECTION
     Dosage: 600MG PER DAY
     Route: 048
     Dates: start: 20010402
  3. ABACAVIR SULPHATE [Suspect]
     Indication: HIV INFECTION
     Dosage: 600MG PER DAY
     Route: 048
     Dates: start: 20010402
  4. LOPINAVIR + RITONAVIR [Suspect]
     Indication: HIV INFECTION
     Dosage: 8TAB PER DAY
     Route: 048
     Dates: start: 20010402
  5. AMPHOTERICIN B [Concomitant]
     Dates: start: 20010401, end: 20010910
  6. INDINAVIR SULFATE [Concomitant]
     Dates: start: 19960909, end: 20010401
  7. LANSOPRAZOLE [Concomitant]
     Dates: end: 20010813
  8. ZALCITABINE [Concomitant]
     Dates: start: 19960725, end: 20010402
  9. ZIDOVUDINE [Concomitant]
     Dates: start: 19951121, end: 20010402

REACTIONS (2)
  - HYPERLIPIDAEMIA [None]
  - RASH [None]
